FAERS Safety Report 10407007 (Version 1)
Quarter: 2014Q3

REPORT INFORMATION
  Report Type: Spontaneous
  Country: IT (occurrence: None)
  Receive Date: 20140821
  Receipt Date: 20140821
  Transmission Date: 20150326
  Serious: Yes (Other)
  Sender: FDA-Public Use
  Company Number: NL01PV14.36910

PATIENT
  Age: 42 Year
  Sex: Female

DRUGS (1)
  1. ZOLPIDEM [Suspect]
     Active Substance: ZOLPIDEM\ZOLPIDEM TARTRATE
     Indication: DRUG ABUSE
     Dosage: 50 MG, TOTAL ORAL
     Route: 048
     Dates: start: 20140520, end: 20140520

REACTIONS (2)
  - Sopor [None]
  - Drug abuse [None]

NARRATIVE: CASE EVENT DATE: 20140520
